FAERS Safety Report 7912539-2 (Version None)
Quarter: 2011Q4

REPORT INFORMATION
  Report Type: 
  Country: None (occurrence: None)
  Receive Date: 20111114
  Receipt Date: 20111109
  Transmission Date: 20120403
  Serious: No
  Sender: FDA-Public Use
  Company Number: US-PFIZER INC-2011274765

PATIENT
  Sex: Female

DRUGS (3)
  1. IBUPROFEN (ADVIL) [Suspect]
     Indication: TOOTHACHE
  2. IBUPROFEN (ADVIL) [Suspect]
     Indication: GINGIVITIS
     Dosage: THREE TABLETS ORALLY,4X/DAY
     Route: 048
     Dates: start: 20111027, end: 20111104
  3. NEXIUM [Suspect]
     Indication: GASTROOESOPHAGEAL REFLUX DISEASE
     Dosage: UNK
     Route: 048
     Dates: end: 20110101

REACTIONS (5)
  - URINE COLOUR ABNORMAL [None]
  - PRURITUS GENERALISED [None]
  - SLEEP DISORDER [None]
  - INCORRECT DOSE ADMINISTERED [None]
  - DYSPEPSIA [None]
